FAERS Safety Report 7426381-2 (Version None)
Quarter: 2011Q2

REPORT INFORMATION
  Report Type: 
  Country: None (occurrence: None)
  Receive Date: 20110420
  Receipt Date: 20110412
  Transmission Date: 20111010
  Serious: Yes (Death)
  Sender: FDA-Public Use
  Company Number: US-JNJFOC-20110406273

PATIENT

DRUGS (4)
  1. TRIAPIN [Suspect]
     Route: 042
  2. TRIAPIN [Suspect]
     Indication: NEOPLASM MALIGNANT
     Route: 042
  3. DOXORUBICIN HYDROCHLORIDE [Suspect]
     Indication: NEOPLASM MALIGNANT
     Route: 042
  4. DOXORUBICIN HYDROCHLORIDE [Suspect]
     Route: 042

REACTIONS (1)
  - CARDIAC FAILURE [None]
